FAERS Safety Report 23050094 (Version 1)
Quarter: 2023Q4

REPORT INFORMATION
  Report Type: Spontaneous
  Country: CA (occurrence: CA)
  Receive Date: 20231010
  Receipt Date: 20231010
  Transmission Date: 20240110
  Serious: Yes (Death, Life-Threatening, Hospitalization)
  Sender: FDA-Public Use
  Company Number: CA-FreseniusKabi-FK202315837

PATIENT
  Age: 37 Year
  Sex: Male
  Weight: 126 kg

DRUGS (12)
  1. HEPARIN [Suspect]
     Active Substance: HEPARIN SODIUM
     Indication: Mesenteric vein thrombosis
     Dosage: 5000 UNITS
     Route: 042
  2. ACETAMINOPHEN [Concomitant]
     Active Substance: ACETAMINOPHEN
     Indication: Product used for unknown indication
  3. BENZOCAINE [Concomitant]
     Active Substance: BENZOCAINE
     Indication: Product used for unknown indication
  4. CEFTRIAXONE SODIUM [Concomitant]
     Active Substance: CEFTRIAXONE SODIUM
     Indication: Product used for unknown indication
  5. DIMENHYDRINATE [Concomitant]
     Active Substance: DIMENHYDRINATE
     Indication: Product used for unknown indication
  6. HYDROMORPHONE [Concomitant]
     Active Substance: HYDROMORPHONE
     Indication: Product used for unknown indication
  7. INSULIN NOS [Concomitant]
     Active Substance: INSULIN NOS
     Indication: Product used for unknown indication
  8. LANSOPRAZOLE [Concomitant]
     Active Substance: LANSOPRAZOLE
     Indication: Product used for unknown indication
  9. MENTHOL [Concomitant]
     Active Substance: MENTHOL
     Indication: Product used for unknown indication
  10. METOPROLOL [Concomitant]
     Active Substance: METOPROLOL
     Indication: Product used for unknown indication
     Route: 065
  11. METRONIDAZOLE [Concomitant]
     Active Substance: METRONIDAZOLE
     Indication: Product used for unknown indication
  12. ONDANSETRON [Concomitant]
     Active Substance: ONDANSETRON
     Indication: Product used for unknown indication

REACTIONS (11)
  - Aspiration [Fatal]
  - Bacterial translocation [Fatal]
  - Cardiac arrest [Fatal]
  - Cardio-respiratory arrest [Fatal]
  - Diarrhoea [Fatal]
  - Heparin-induced thrombocytopenia [Fatal]
  - Hepatic vascular thrombosis [Fatal]
  - Mesenteric vein thrombosis [Fatal]
  - Peritonitis [Fatal]
  - Portal vein thrombosis [Fatal]
  - Sepsis [Fatal]
